FAERS Safety Report 22038204 (Version 14)
Quarter: 2023Q4

REPORT INFORMATION
  Report Type: Spontaneous
  Country: CA (occurrence: CA)
  Receive Date: 20230227
  Receipt Date: 20231223
  Transmission Date: 20240109
  Serious: Yes (Other)
  Sender: FDA-Public Use
  Company Number: CA-CELLTRION INC.-2023CA003128

PATIENT

DRUGS (15)
  1. INFLECTRA [Suspect]
     Active Substance: INFLIXIMAB-DYYB
     Indication: Colitis ulcerative
     Dosage: 5 MG/KG, WEEK 0,2,6 THEN Q 8 WEEKS
     Route: 042
     Dates: start: 20230202
  2. INFLECTRA [Suspect]
     Active Substance: INFLIXIMAB-DYYB
     Dosage: 5MG/KG, INDUCTION WEEK 2 INDUCTION
     Route: 042
     Dates: start: 20230216
  3. INFLECTRA [Suspect]
     Active Substance: INFLIXIMAB-DYYB
     Dosage: 5 MG/KG, WEEK 0,2,6 THEN Q 8 WEEKS
     Route: 042
     Dates: start: 20230320
  4. INFLECTRA [Suspect]
     Active Substance: INFLIXIMAB-DYYB
     Dosage: 5 MG/KG,EVERY 4 WEEKS
     Route: 042
     Dates: start: 20230504
  5. INFLECTRA [Suspect]
     Active Substance: INFLIXIMAB-DYYB
     Dosage: 250 MG (5 MG/KG) AFTER 4 WEEKS
     Route: 042
     Dates: start: 20230601
  6. INFLECTRA [Suspect]
     Active Substance: INFLIXIMAB-DYYB
     Dosage: 262.5MG (5 MG/KG) AFTER 4 WEEKS
     Route: 042
     Dates: start: 20230630
  7. INFLECTRA [Suspect]
     Active Substance: INFLIXIMAB-DYYB
     Dosage: 5 MG/KG, EVERY 4 WEEKS
     Route: 042
     Dates: start: 20230727
  8. INFLECTRA [Suspect]
     Active Substance: INFLIXIMAB-DYYB
     Dosage: 5 MG/KG, EVERY 4 WEEKS
     Route: 042
     Dates: start: 20230921
  9. INFLECTRA [Suspect]
     Active Substance: INFLIXIMAB-DYYB
     Dosage: 260MG (5MG/KG), 4 WEEKS
     Route: 042
     Dates: start: 20231019
  10. INFLECTRA [Suspect]
     Active Substance: INFLIXIMAB-DYYB
     Dosage: 5 MG/KG, EVERY 4 WEEKS
     Route: 042
     Dates: start: 20231116
  11. INFLECTRA [Suspect]
     Active Substance: INFLIXIMAB-DYYB
     Dosage: 5 MG/KG, EVERY 4 WEEKS (260 MG)
     Route: 042
     Dates: start: 20231214
  12. ASPIRIN [Concomitant]
     Active Substance: ASPIRIN
     Dosage: 4.8 MG (1 DF)
  13. PREDNISONE [Concomitant]
     Active Substance: PREDNISONE
     Dosage: 25 MG, DAILY
  14. PREDNISONE [Concomitant]
     Active Substance: PREDNISONE
     Dosage: 40 MG
  15. PREDNISONE [Concomitant]
     Active Substance: PREDNISONE
     Dosage: 35 MG
     Dates: start: 2023

REACTIONS (19)
  - Sinus pain [Not Recovered/Not Resolved]
  - Rhinalgia [Not Recovered/Not Resolved]
  - Anaemia [Unknown]
  - Condition aggravated [Recovered/Resolved]
  - Therapy non-responder [Unknown]
  - Drug level above therapeutic [Unknown]
  - General physical health deterioration [Unknown]
  - Malaise [Not Recovered/Not Resolved]
  - Pyrexia [Not Recovered/Not Resolved]
  - Chills [Not Recovered/Not Resolved]
  - Oropharyngeal pain [Recovered/Resolved]
  - Swelling [Not Recovered/Not Resolved]
  - Catheter site pain [Recovering/Resolving]
  - Sleep disorder due to general medical condition, insomnia type [Unknown]
  - Catheter site haemorrhage [Unknown]
  - Infusion site swelling [Unknown]
  - Catheter site bruise [Unknown]
  - Alopecia [Not Recovered/Not Resolved]
  - Off label use [Unknown]

NARRATIVE: CASE EVENT DATE: 20230101
